FAERS Safety Report 9015220 (Version 1)
Quarter: 2013Q1

REPORT INFORMATION
  Report Type: Spontaneous
  Country: US (occurrence: None)
  Receive Date: 20130109
  Receipt Date: 20130109
  Transmission Date: 20140127
  Serious: Yes (Other)
  Sender: FDA-Public Use
  Company Number: None

PATIENT
  Age: 70 Year
  Sex: Female
  Weight: 65.77 kg

DRUGS (1)
  1. TIROSINT 75MG IBSA / AKRIMAX PHARMACEUTICALS [Suspect]
     Dosage: 1 CAPSULE 75 MG ONCE A DAY PO
     Route: 048

REACTIONS (8)
  - Fatigue [None]
  - Nausea [None]
  - Somnolence [None]
  - Influenza [None]
  - Gait disturbance [None]
  - Muscle spasms [None]
  - Pain [None]
  - Feeling of body temperature change [None]
